FAERS Safety Report 20801471 (Version 2)
Quarter: 2022Q2

REPORT INFORMATION
  Report Type: Spontaneous
  Country: IR (occurrence: IR)
  Receive Date: 20220509
  Receipt Date: 20220520
  Transmission Date: 20220720
  Serious: Yes (Death, Hospitalization)
  Sender: FDA-Public Use
  Company Number: IR-VALIDUS PHARMACEUTICALS LLC-IR-VDP-2022-015463

PATIENT

DRUGS (9)
  1. FUROSEMIDE [Suspect]
     Active Substance: FUROSEMIDE
     Indication: Product used for unknown indication
     Dosage: 6 MG, QH
     Route: 065
  2. HYDROXYCHLOROQUINE SULFATE [Suspect]
     Active Substance: HYDROXYCHLOROQUINE SULFATE
     Indication: Product used for unknown indication
     Dosage: 200 MG, BID
     Route: 065
  3. NOREPINEPHRINE [Concomitant]
     Active Substance: NOREPINEPHRINE
     Indication: Hypotension
     Dosage: 5-10 MCG/MIN
     Route: 065
  4. NOREPINEPHRINE [Concomitant]
     Active Substance: NOREPINEPHRINE
     Indication: Anuria
  5. PIPERACILLIN SODIUM\TAZOBACTAM SODIUM [Concomitant]
     Active Substance: PIPERACILLIN SODIUM\TAZOBACTAM SODIUM
     Indication: Septic shock
     Dosage: 2.25 G TDS
     Route: 042
  6. DOPAMINE HYDROCHLORIDE [Concomitant]
     Active Substance: DOPAMINE HYDROCHLORIDE
     Indication: Product used for unknown indication
     Dosage: 3 UG/KG/MN
     Route: 065
  7. HEPARIN [Concomitant]
     Active Substance: HEPARIN SODIUM
     Indication: Myocardial infarction
     Dosage: UNK
     Route: 065
  8. HEPARIN [Concomitant]
     Active Substance: HEPARIN SODIUM
     Indication: Pulmonary embolism
  9. ATAZANAVIR\RITONAVIR [Concomitant]
     Active Substance: ATAZANAVIR\RITONAVIR
     Indication: COVID-19
     Dosage: 300/100 MG DAILY
     Route: 065

REACTIONS (2)
  - COVID-19 [Fatal]
  - Off label use [Fatal]
